FAERS Safety Report 4318401-9 (Version None)
Quarter: 2004Q1

REPORT INFORMATION
  Report Type: 
  Country: None (occurrence: None)
  Receive Date: 20040315
  Receipt Date: 20040305
  Transmission Date: 20041129
  Serious: Yes (Other)
  Sender: FDA-Public Use
  Company Number: JP-JNJFOC-20040301100

PATIENT
  Age: 87 Year
  Sex: Female

DRUGS (23)
  1. ITRACONAZOLE [Suspect]
     Indication: ORAL CANDIDIASIS
     Dosage: 100 MG, IN 1 DAY, ORAL
     Route: 048
     Dates: start: 20040209, end: 20040220
  2. RISPERDAL [Concomitant]
  3. NICERGOLINE (NICERGOLINE) [Concomitant]
  4. FAMOTIDINE [Concomitant]
  5. ISOSORBIDE DINITRATE [Concomitant]
  6. TICLOPIDINE HCL [Concomitant]
  7. AMLODIPINE BESYLATE [Concomitant]
  8. ANTIHYPERTENSIVES (ANTIHYPERTENSIVES) [Concomitant]
  9. VALSARTAN (VALSARTAN) [Concomitant]
  10. DIGOXIN [Concomitant]
  11. ZOLPIDEM TARTRATE [Concomitant]
  12. LORAZEPAM [Concomitant]
  13. SENNOSIDE (ALL OTHER THERAPEUTIC PRODUCTS) [Concomitant]
  14. VOGLIBOSE (VOGLIBOSE) [Concomitant]
  15. DISOPYRAMIDE [Concomitant]
  16. MINOCYCLINE HYDROCHLORIDE [Concomitant]
  17. LOPERAMIDE HCL [Concomitant]
  18. NITROGLYCERIN [Concomitant]
  19. MICONAZOLE [Concomitant]
  20. VANCOMYCIN PREPARATIONS (VANCOMYCIN) [Concomitant]
  21. BLOOD SUBSTITUTES (ALL OTHER THERAPEUTIC PRODUCTS) [Concomitant]
  22. ISOTONIC SODIUM CHLORIDE SOLUTION (ISOTONIC SOLUTIONS) [Concomitant]
  23. LACTATED RINGERS SOLUTION (RINGER ^MERCK^) [Concomitant]

REACTIONS (1)
  - THROMBOCYTOPENIA [None]
